FAERS Safety Report 5564355-7 (Version None)
Quarter: 2007Q4

REPORT INFORMATION
  Report Type: 
  Country: None (occurrence: None)
  Receive Date: 20071218
  Receipt Date: 20071210
  Transmission Date: 20080405
  Serious: Yes (Hospitalization)
  Sender: FDA-Public Use
  Company Number: PHRM2007FR02771

PATIENT
  Age: 31 Year
  Sex: Female

DRUGS (3)
  1. ZOMETA [Suspect]
     Dosage: 4 MG, ONCE/SINGLE
     Dates: start: 20070925, end: 20070925
  2. MABTHERA [Concomitant]
     Dosage: 375 MG/M2, ONCE/SINGLE
     Dates: start: 20070925, end: 20070925
  3. CORTANCYL [Concomitant]
     Dates: start: 20070925, end: 20070925

REACTIONS (3)
  - LYMPHOPENIA [None]
  - MYALGIA [None]
  - TENDERNESS [None]
